FAERS Safety Report 18640263 (Version 5)
Quarter: 2021Q4

REPORT INFORMATION
  Report Type: Spontaneous
  Country: JP (occurrence: JP)
  Receive Date: 20201220
  Receipt Date: 20211021
  Transmission Date: 20220303
  Serious: Yes (Death, Life-Threatening, Hospitalization, Other)
  Sender: FDA-Public Use
  Company Number: JP-BRISTOL-MYERS SQUIBB COMPANY-BMS-2020-108824

PATIENT
  Age: 57 Year
  Sex: Female
  Weight: 47.45 kg

DRUGS (15)
  1. OPDIVO [Suspect]
     Active Substance: NIVOLUMAB
     Indication: Malignant melanoma
     Dosage: 80 MILLIGRAM
     Route: 041
     Dates: start: 20201013
  2. YERVOY [Suspect]
     Active Substance: IPILIMUMAB
     Indication: Malignant melanoma
     Dosage: 3 MILLIGRAM/KILOGRAM
     Route: 041
     Dates: start: 20201013
  3. PREDNISOLONE [Concomitant]
     Active Substance: PREDNISOLONE
     Indication: Pemphigoid
     Dosage: 30 MILLIGRAM
     Route: 065
     Dates: start: 20201027
  4. PREDNISOLONE [Concomitant]
     Active Substance: PREDNISOLONE
     Indication: Pleural effusion
     Dosage: 25 MILLIGRAM
     Route: 065
     Dates: start: 20201105, end: 20201113
  5. PREDNISOLONE [Concomitant]
     Active Substance: PREDNISOLONE
     Dosage: 20 MILLIGRAM
     Route: 065
     Dates: start: 20201113
  6. PREDNISOLONE ACETATE [Concomitant]
     Active Substance: PREDNISOLONE ACETATE
     Indication: Immune-mediated hepatic disorder
     Dosage: 40 MILLIGRAM
     Route: 065
     Dates: start: 20201118, end: 20201127
  7. PREDNISOLONE ACETATE [Concomitant]
     Active Substance: PREDNISOLONE ACETATE
     Dosage: 40 MILLIGRAM
     Route: 065
     Dates: start: 20201130
  8. MEROPENEM [Concomitant]
     Active Substance: MEROPENEM
     Indication: Sepsis
     Dosage: UNK
     Route: 065
     Dates: start: 20201118
  9. NONTHRON [Concomitant]
     Indication: Sepsis
     Dosage: 1500 UNK
     Route: 065
     Dates: start: 20201118, end: 20201121
  10. MENATETRENONE [Concomitant]
     Active Substance: MENATETRENONE
     Indication: Sepsis
     Dosage: UNK
     Route: 065
     Dates: start: 20201119, end: 20201123
  11. CLOPIDOGREL [Concomitant]
     Active Substance: CLOPIDOGREL BISULFATE
     Indication: Sepsis
     Dosage: UNK
     Route: 065
     Dates: start: 20201120
  12. MYCOPHENOLATE MOFETIL [Concomitant]
     Active Substance: MYCOPHENOLATE MOFETIL
     Indication: Immune-mediated hepatic disorder
     Dosage: 1500 MILLIGRAM
     Route: 065
     Dates: start: 20201130
  13. MYCOPHENOLATE MOFETIL [Concomitant]
     Active Substance: MYCOPHENOLATE MOFETIL
     Dosage: 500 MILLIGRAM
     Route: 065
  14. CUBICIN [Concomitant]
     Active Substance: DAPTOMYCIN
     Indication: Sepsis
     Dosage: UNK
     Route: 065
  15. DALTEPARIN [Concomitant]
     Active Substance: DALTEPARIN
     Indication: Sepsis
     Dosage: UNK
     Route: 065
     Dates: start: 20201118

REACTIONS (7)
  - Sepsis [Unknown]
  - Pleural effusion [Unknown]
  - Hypopituitarism [Unknown]
  - Pemphigoid [Recovering/Resolving]
  - Immune-mediated hepatic disorder [Recovered/Resolved]
  - Malignant neoplasm progression [Unknown]
  - Pancytopenia [Not Recovered/Not Resolved]

NARRATIVE: CASE EVENT DATE: 20201021
